FAERS Safety Report 9739440 (Version 2)
Quarter: 2014Q1

REPORT INFORMATION
  Report Type: Spontaneous
  Country: US (occurrence: US)
  Receive Date: 20131209
  Receipt Date: 20140110
  Transmission Date: 20141002
  Serious: Yes (Death, Hospitalization)
  Sender: FDA-Public Use
  Company Number: US-AMGEN-USASP2013085496

PATIENT
  Age: 89 Year
  Sex: Female
  Weight: 49.89 kg

DRUGS (5)
  1. PROLIA [Suspect]
     Indication: OSTEOPOROSIS POSTMENOPAUSAL
     Dosage: 60 MG, Q6MO
     Route: 058
  2. PRADAXA [Suspect]
     Indication: ATRIAL FIBRILLATION
     Dosage: UNK
     Route: 048
     Dates: start: 201308
  3. ALDACTONE                          /00006201/ [Concomitant]
     Dosage: 25 UNK, UNK
     Route: 048
  4. CAPTOPRIL [Concomitant]
     Indication: ESSENTIAL HYPERTENSION
     Dosage: 6.25 G, BID
     Route: 048
  5. LASIX                              /00032601/ [Concomitant]
     Indication: ESSENTIAL HYPERTENSION
     Dosage: 60 G, QD
     Route: 048

REACTIONS (6)
  - Ischaemic stroke [Fatal]
  - Atrial fibrillation [Unknown]
  - Gastrointestinal haemorrhage [Unknown]
  - Haemoglobin decreased [Unknown]
  - Faeces discoloured [Unknown]
  - Gastric ulcer [Unknown]
